FAERS Safety Report 7929446-1 (Version None)
Quarter: 2011Q4

REPORT INFORMATION
  Report Type: 
  Country: None (occurrence: None)
  Receive Date: 20111121
  Receipt Date: 20111116
  Transmission Date: 20120403
  Serious: No
  Sender: FDA-Public Use
  Company Number: US-BIOGENIDEC-2011BI044128

PATIENT
  Age: 24 Year
  Sex: Female

DRUGS (1)
  1. TYSABRI [Suspect]
     Indication: MULTIPLE SCLEROSIS
     Route: 042
     Dates: start: 20110614

REACTIONS (19)
  - DIPLOPIA [None]
  - VISION BLURRED [None]
  - GAIT DISTURBANCE [None]
  - TRIGEMINAL NEURALGIA [None]
  - MUSCLE SPASTICITY [None]
  - DYSPHAGIA [None]
  - PNEUMONIA [None]
  - CHEST PAIN [None]
  - PARAESTHESIA [None]
  - COUGH [None]
  - INFECTIOUS MONONUCLEOSIS [None]
  - HYPOAESTHESIA [None]
  - TREMOR [None]
  - INSOMNIA [None]
  - SOMNOLENCE [None]
  - SNEEZING [None]
  - PHARYNGEAL OEDEMA [None]
  - OROPHARYNGEAL PAIN [None]
  - FALL [None]
